FAERS Safety Report 17422913 (Version 1)
Quarter: 2020Q1

REPORT INFORMATION
  Report Type: Spontaneous
  Country: US (occurrence: US)
  Receive Date: 20200216
  Receipt Date: 20200216
  Transmission Date: 20200409
  Serious: Yes (Other)
  Sender: FDA-Public Use
  Company Number: US-JNJFOC-20200208902

PATIENT
  Age: 62 Year
  Sex: Female

DRUGS (4)
  1. IBUPROFEN. [Suspect]
     Active Substance: IBUPROFEN
     Indication: ARTHRALGIA
     Dosage: 200 MG TO 400 MG PRN (2014 TO 2018) AND 600 MG Q6H ( AROUND 2018)
     Route: 065
  2. MARIJUANA [Concomitant]
     Active Substance: CANNABIS SATIVA SUBSP. INDICA TOP
     Indication: ARTHRALGIA
     Route: 065
  3. COCAINE [Suspect]
     Active Substance: COCAINE
     Indication: ARTHRALGIA
     Route: 065
  4. FLUOXETINE [Concomitant]
     Active Substance: FLUOXETINE HYDROCHLORIDE
     Indication: DEPRESSION
     Dosage: SLOWLY TITRATED FROM 20 MG TO 60 MG DAILY BETWEEN 2013 AND 2018, BUT REDUCED AND THEN STOPPED AFTER
     Route: 065

REACTIONS (1)
  - Chronic kidney disease [Unknown]
